FAERS Safety Report 6866350-4 (Version None)
Quarter: 2010Q3

REPORT INFORMATION
  Report Type: 
  Country: None (occurrence: None)
  Receive Date: 20100722
  Receipt Date: 20100708
  Transmission Date: 20110219
  Serious: Yes (Other)
  Sender: FDA-Public Use
  Company Number: PHHY2010CA45426

PATIENT
  Sex: Female

DRUGS (4)
  1. EXJADE [Suspect]
     Indication: APLASTIC ANAEMIA
     Dosage: 1500 MG, QD
     Route: 048
     Dates: start: 20091001
  2. DIOVAN [Concomitant]
     Indication: BLOOD PRESSURE
     Dosage: 80 MG, UNK
     Route: 048
  3. METOPROLOL [Concomitant]
     Dosage: 25 MG, BID
     Route: 048
  4. SYNTHROID [Concomitant]
     Dosage: UNK
     Dates: start: 19880101

REACTIONS (1)
  - HYPOTENSION [None]
